FAERS Safety Report 9163244 (Version 1)
Quarter: 2013Q1

REPORT INFORMATION
  Report Type: Spontaneous
  Country: FR (occurrence: FR)
  Receive Date: 20130314
  Receipt Date: 20130314
  Transmission Date: 20140127
  Serious: Yes (Other)
  Sender: FDA-Public Use
  Company Number: FR-ROCHE-1201576

PATIENT
  Sex: Male

DRUGS (7)
  1. RIVOTRIL [Suspect]
     Indication: DEPRESSION
     Route: 048
     Dates: end: 20080926
  2. ANDROGEL [Suspect]
     Indication: LIBIDO DISORDER
     Route: 048
     Dates: start: 20080925, end: 20080925
  3. NEURONTIN [Suspect]
     Indication: DEPRESSION
     Route: 048
     Dates: end: 20080926
  4. SERESTA [Suspect]
     Indication: DEPRESSION
     Route: 048
     Dates: end: 20080926
  5. MUSE [Concomitant]
     Indication: ERECTILE DYSFUNCTION
     Route: 066
     Dates: start: 20080925, end: 20080925
  6. ATARAX (FRANCE) [Concomitant]
     Indication: ANXIETY
     Route: 048
     Dates: end: 20080926
  7. PARACETAMOL [Concomitant]
     Indication: PAIN
     Route: 048
     Dates: end: 20080926

REACTIONS (6)
  - Anterograde amnesia [Recovered/Resolved]
  - Confusional state [Recovered/Resolved]
  - Aggression [Recovered/Resolved]
  - Vasodilatation [None]
  - Suicide attempt [None]
  - Incorrect dose administered [None]
